FAERS Safety Report 11338160 (Version 1)
Quarter: 2015Q3

REPORT INFORMATION
  Report Type: Spontaneous
  Country: US (occurrence: US)
  Receive Date: 20150803
  Receipt Date: 20150803
  Transmission Date: 20151125
  Serious: No
  Sender: FDA-Public Use
  Company Number: US-ELI_LILLY_AND_COMPANY-US201007003083

PATIENT
  Sex: Female

DRUGS (4)
  1. SYNTHROID [Concomitant]
     Active Substance: LEVOTHYROXINE SODIUM
  2. ZYPREXA [Suspect]
     Active Substance: OLANZAPINE
     Indication: INSOMNIA
     Dosage: 5 MG, DAILY (1/D)
     Dates: start: 20100414, end: 20100415
  3. ZYPREXA [Suspect]
     Active Substance: OLANZAPINE
  4. XANAX XR [Concomitant]
     Active Substance: ALPRAZOLAM

REACTIONS (6)
  - Heart rate increased [Unknown]
  - Chest discomfort [Unknown]
  - Feeling abnormal [Unknown]
  - Cardiac disorder [Unknown]
  - Chest pain [Unknown]
  - Off label use [Recovered/Resolved]

NARRATIVE: CASE EVENT DATE: 20100414
